FAERS Safety Report 11376595 (Version 2)
Quarter: 2015Q3

REPORT INFORMATION
  Report Type: Spontaneous
  Country: FR (occurrence: FR)
  Receive Date: 20150813
  Receipt Date: 20150820
  Transmission Date: 20151125
  Serious: Yes (Hospitalization, Other)
  Sender: FDA-Public Use
  Company Number: FR-PFIZER INC-2015266863

PATIENT
  Age: 85 Year
  Sex: Male

DRUGS (10)
  1. ZOLOFT [Suspect]
     Active Substance: SERTRALINE HYDROCHLORIDE
     Dosage: UNK
     Route: 048
     Dates: end: 20150702
  2. ZOLOFT [Suspect]
     Active Substance: SERTRALINE HYDROCHLORIDE
     Dosage: UNK
     Route: 048
     Dates: start: 20150706
  3. TAHOR [Concomitant]
     Active Substance: ATORVASTATIN CALCIUM
     Dosage: UNK
     Route: 065
  4. KOMBOGLYZE [Concomitant]
     Active Substance: METFORMIN HYDROCHLORIDE\SAXAGLIPTIN
     Dosage: UNK
     Route: 065
  5. DIGOXINE [Suspect]
     Active Substance: DIGOXIN
     Dosage: UNK
     Route: 048
     Dates: end: 20150702
  6. EBIXA [Suspect]
     Active Substance: MEMANTINE HYDROCHLORIDE
     Dosage: UNK
     Route: 048
     Dates: start: 2014, end: 20150702
  7. ARICEPT [Suspect]
     Active Substance: DONEPEZIL HYDROCHLORIDE
     Dosage: UNK
     Route: 048
     Dates: start: 2014, end: 20150702
  8. CORGARD [Suspect]
     Active Substance: NADOLOL
     Dosage: UNK
     Route: 048
     Dates: end: 20150702
  9. VELITEN [Concomitant]
     Dosage: UNK
     Route: 065
  10. PERMIXON [Concomitant]
     Active Substance: SAW PALMETTO
     Dosage: UNK
     Route: 065

REACTIONS (6)
  - Sinus bradycardia [Recovered/Resolved]
  - Atrial fibrillation [Unknown]
  - Disease recurrence [Unknown]
  - Atrioventricular block first degree [Unknown]
  - General physical health deterioration [Unknown]
  - Somnolence [Unknown]

NARRATIVE: CASE EVENT DATE: 20150702
